FAERS Safety Report 12550268 (Version 3)
Quarter: 2016Q3

REPORT INFORMATION
  Report Type: Spontaneous
  Country: JP (occurrence: JP)
  Receive Date: 20160712
  Receipt Date: 20160926
  Transmission Date: 20161109
  Serious: Yes (Other)
  Sender: FDA-Public Use
  Company Number: JP-FRI-1000085913

PATIENT
  Age: 57 Year
  Sex: Male

DRUGS (3)
  1. NAFTOPIDIL [Concomitant]
     Active Substance: NAFTOPIDIL
     Dosage: UNK
     Dates: start: 2012, end: 20160607
  2. ASENAPINE MALEATE UNK [Suspect]
     Active Substance: ASENAPINE MALEATE
     Indication: AUTISM SPECTRUM DISORDER
     Dosage: 5 MG
     Route: 060
     Dates: start: 20160607, end: 20160607
  3. CHOREI-TO [Concomitant]
     Dosage: UNK
     Dates: start: 2012

REACTIONS (5)
  - Palpitations [Recovering/Resolving]
  - Visual impairment [Recovered/Resolved]
  - Off label use [Recovered/Resolved]
  - Dyspnoea [Recovering/Resolving]
  - Akathisia [Recovered/Resolved]

NARRATIVE: CASE EVENT DATE: 20160607
